FAERS Safety Report 6750224-3 (Version None)
Quarter: 2010Q2

REPORT INFORMATION
  Report Type: 
  Country: None (occurrence: None)
  Receive Date: 20100601
  Receipt Date: 20100520
  Transmission Date: 20101027
  Serious: Yes (Hospitalization, Other)
  Sender: FDA-Public Use
  Company Number: GB-PFIZER INC-2010063837

PATIENT
  Age: 65 Year
  Sex: Female

DRUGS (12)
  1. LYRICA [Suspect]
     Dosage: 75 MG, 2X/DAY
  2. BISACODYL [Concomitant]
     Dosage: 5 MG, UNK
  3. NEBIVOLOL [Concomitant]
     Dosage: 5 MG, 1X/DAY
  4. RAMIPRIL [Concomitant]
     Dosage: 10 MG, 1X/DAY
  5. SIMVASTATIN [Concomitant]
     Dosage: 40 MG, UNK
  6. OMEPRAZOLE [Concomitant]
     Dosage: 20 MG, 1X/DAY
  7. DOMPERIDONE [Concomitant]
     Dosage: 10 MG, 3X/DAY AT NIGHT
  8. TRAMADOL [Concomitant]
     Dosage: 150 MG, 2X/DAY
  9. ZOLPIDEM [Concomitant]
     Dosage: 20 MG, UNK
  10. GABAPENTIN [Concomitant]
     Dosage: 600 MG, 3X/DAY
  11. DOSULEPIN [Concomitant]
     Dosage: 25 MG, 1X/DAY
  12. INDAPAMIDE [Concomitant]
     Dosage: 1.5 MG, 1X/DAY

REACTIONS (3)
  - CEREBELLAR SYNDROME [None]
  - CEREBRAL MICROANGIOPATHY [None]
  - DEMYELINATION [None]
